FAERS Safety Report 7012681-7 (Version None)
Quarter: 2010Q3

REPORT INFORMATION
  Report Type: 
  Country: None (occurrence: None)
  Receive Date: 20100924
  Receipt Date: 20100920
  Transmission Date: 20110219
  Serious: No
  Sender: FDA-Public Use
  Company Number: CA-JNJFOC-20100906147

PATIENT
  Sex: Female
  Weight: 121.11 kg

DRUGS (1)
  1. STELARA [Suspect]
     Indication: PSORIASIS
     Route: 058
     Dates: start: 20091217

REACTIONS (2)
  - EAR INFECTION [None]
  - THROAT IRRITATION [None]
